FAERS Safety Report 6350091 (Version 11)
Quarter: 2016Q3

REPORT INFORMATION
  Report Type: Spontaneous
  Country: JP (occurrence: JP)
  Receive Date: 20070705
  Receipt Date: 20160919
  Transmission Date: 20161109
  Serious: Yes (Other)
  Sender: FDA-Public Use
  Company Number: JP-BRISTOL-MYERS SQUIBB COMPANY-13829551

PATIENT
  Age: 0 Day
  Sex: Male
  Weight: 3.68 kg

DRUGS (13)
  1. AKINETON [Suspect]
     Active Substance: BIPERIDEN HYDROCHLORIDE
     Indication: PRODUCT USED FOR UNKNOWN INDICATION
     Dosage: 2 MG, QD
     Route: 064
     Dates: start: 20061206, end: 20070415
  2. AKINETON [Suspect]
     Active Substance: BIPERIDEN HYDROCHLORIDE
     Dosage: 1.5 MG, QD
     Route: 064
     Dates: start: 20070416, end: 20070613
  3. SAWACILLIN [Suspect]
     Active Substance: AMOXICILLIN
     Indication: PRODUCT USED FOR UNKNOWN INDICATION
     Dosage: 250 MG, TID
     Route: 064
     Dates: start: 20070613, end: 20070613
  4. METHERGINE [Suspect]
     Active Substance: METHYLERGONOVINE MALEATE
     Indication: PRODUCT USED FOR UNKNOWN INDICATION
     Dosage: 0.125 MG, TID
     Route: 064
     Dates: start: 20070613, end: 20070613
  5. DEPAS [Suspect]
     Active Substance: ETIZOLAM
     Dosage: 1 MG, QD
     Route: 064
     Dates: start: 20070205, end: 20070613
  6. NEUER [Suspect]
     Active Substance: CETRAXATE HYDROCHLORIDE
     Indication: PRODUCT USED FOR UNKNOWN INDICATION
     Dosage: 200 MG, TID
     Route: 064
     Dates: start: 20070613, end: 20070613
  7. PENTCILLIN [Suspect]
     Active Substance: PIPERACILLIN SODIUM
     Indication: PRODUCT USED FOR UNKNOWN INDICATION
     Dosage: 1 G, QD
     Route: 064
     Dates: start: 20070613, end: 20070613
  8. ABILIFY [Suspect]
     Active Substance: ARIPIPRAZOLE
     Dosage: 24 MG, QD
     Route: 064
     Dates: start: 20061215, end: 20070121
  9. ABILIFY [Suspect]
     Active Substance: ARIPIPRAZOLE
     Dosage: 9 MG, QD
     Route: 064
     Dates: start: 20070122, end: 20070613
  10. DORAL [Suspect]
     Active Substance: QUAZEPAM
     Indication: PRODUCT USED FOR UNKNOWN INDICATION
     Dosage: 15 MG, QD
     Route: 064
     Dates: start: 20070611, end: 20070613
  11. ABILIFY [Suspect]
     Active Substance: ARIPIPRAZOLE
     Indication: PRODUCT USED FOR UNKNOWN INDICATION
     Dosage: 12 MG, QD
     Route: 064
     Dates: start: 20061206, end: 20061214
  12. DEPAS [Suspect]
     Active Substance: ETIZOLAM
     Indication: PRODUCT USED FOR UNKNOWN INDICATION
     Dosage: 2 MG, QD
     Route: 064
     Dates: start: 20061206, end: 20070204
  13. ATONIN-O [Suspect]
     Active Substance: OXYTOCIN
     Indication: PRODUCT USED FOR UNKNOWN INDICATION
     Dosage: 5 IU, BID
     Route: 064
     Dates: start: 20070613, end: 20070613

REACTIONS (3)
  - Drug withdrawal syndrome neonatal [Recovering/Resolving]
  - Foetal exposure timing unspecified [Unknown]
  - Infantile apnoea [Unknown]

NARRATIVE: CASE EVENT DATE: 20070613
